FAERS Safety Report 17973317 (Version 1)
Quarter: 2020Q3

REPORT INFORMATION
  Report Type: Spontaneous
  Country: FR (occurrence: FR)
  Receive Date: 20200702
  Receipt Date: 20200702
  Transmission Date: 20201103
  Serious: Yes (Hospitalization)
  Sender: FDA-Public Use
  Company Number: FR-CADILA HEALTHCARE LIMITED-FR-ZYDUS-023793

PATIENT

DRUGS (6)
  1. KARDEGIC [Concomitant]
     Active Substance: ASPIRIN DL-LYSINE
  2. JOSACINE [Suspect]
     Active Substance: JOSAMYCIN
     Indication: LUNG DISORDER
     Route: 048
     Dates: start: 20180319, end: 20180322
  3. DUPHALAC [Concomitant]
     Active Substance: LACTULOSE
  4. OMEPRAZOLE. [Suspect]
     Active Substance: OMEPRAZOLE
     Indication: GASTROOESOPHAGEAL REFLUX DISEASE
     Dosage: .5 DOSAGE FORM,(INTERVAL :1 DAYS)
     Route: 048
     Dates: end: 201803
  5. AUGMENTIN [Suspect]
     Active Substance: AMOXICILLIN\CLAVULANATE POTASSIUM
     Indication: LUNG DISORDER
     Route: 048
     Dates: start: 20180319, end: 20180322
  6. FELODIPINE. [Suspect]
     Active Substance: FELODIPINE
     Indication: HYPERTENSION
     Dosage: 1 DOSAGE FORM,(INTERVAL :1 DAYS)
     Route: 048
     Dates: end: 201803

REACTIONS (2)
  - Dermatitis bullous [Recovering/Resolving]
  - Neutrophil count increased [Recovered/Resolved]

NARRATIVE: CASE EVENT DATE: 20180322
